FAERS Safety Report 5916576-9 (Version None)
Quarter: 2008Q4

REPORT INFORMATION
  Report Type: 
  Country: None (occurrence: None)
  Receive Date: 20081013
  Receipt Date: 20081009
  Transmission Date: 20090506
  Serious: Yes (Hospitalization)
  Sender: FDA-Public Use
  Company Number: IT-MERCK-0804ITA00015

PATIENT
  Age: 63 Year
  Sex: Female

DRUGS (1)
  1. FOSAMAX PLUS D [Suspect]
     Indication: OSTEOPOROSIS
     Route: 048
     Dates: start: 20080305, end: 20080305

REACTIONS (4)
  - ARTHRALGIA [None]
  - MALAISE [None]
  - NON-CARDIAC CHEST PAIN [None]
  - PYREXIA [None]
